FAERS Safety Report 8882878 (Version 1)
Quarter: 2012Q4

REPORT INFORMATION
  Report Type: 
  Country: US (occurrence: US)
  Receive Date: 20121102
  Receipt Date: 20121102
  Transmission Date: 20130627
  Serious: No
  Sender: FDA-Public Use
  Company Number: US-ASTRAZENECA-2011SE70591

PATIENT
  Sex: Female

DRUGS (4)
  1. CRESTOR [Suspect]
     Route: 048
     Dates: start: 201009
  2. CRESTOR [Interacting]
     Route: 048
  3. CRESTOR [Interacting]
     Route: 048
     Dates: start: 20111007
  4. TRAZODONE [Interacting]

REACTIONS (5)
  - Night sweats [Unknown]
  - Malaise [Unknown]
  - Drug interaction [Unknown]
  - Wrong technique in drug usage process [Unknown]
  - Drug dose omission [Unknown]
